FAERS Safety Report 5876200-0 (Version None)
Quarter: 2008Q3

REPORT INFORMATION
  Report Type: 
  Country: None (occurrence: None)
  Receive Date: 20080908
  Receipt Date: 20080908
  Transmission Date: 20090109
  Serious: Yes (Other)
  Sender: FDA-Public Use
  Company Number: None

PATIENT
  Age: 81 Year
  Sex: Male
  Weight: 65.7716 kg

DRUGS (3)
  1. PEPCID [Suspect]
     Indication: POSTOPERATIVE CARE
     Dosage: BID
     Dates: start: 20080510, end: 20080515
  2. PEPCID [Suspect]
     Indication: PROPHYLAXIS
     Dosage: BID
     Dates: start: 20080510, end: 20080515
  3. FLOMAX [Suspect]
     Indication: URINARY RETENTION
     Dates: start: 20080513, end: 20080728

REACTIONS (4)
  - AGITATION [None]
  - CONFUSIONAL STATE [None]
  - HALLUCINATION [None]
  - URINARY RETENTION [None]
